FAERS Safety Report 6809398-8 (Version None)
Quarter: 2010Q2

REPORT INFORMATION
  Report Type: 
  Country: None (occurrence: None)
  Receive Date: 20100630
  Receipt Date: 20100628
  Transmission Date: 20101027
  Serious: Yes (Death, Hospitalization)
  Sender: FDA-Public Use
  Company Number: GB-ASTRAZENECA-2010SE30019

PATIENT
  Age: 70 Year
  Sex: Female

DRUGS (23)
  1. OMEPRAZOLE [Suspect]
     Route: 048
  2. ASPIRIN [Suspect]
     Indication: HYPERTENSION
  3. VANCOMYCIN [Suspect]
     Indication: BACTERAEMIA
  4. AMIKACIN [Suspect]
     Indication: BACTERAEMIA
  5. AMITRIPTYLINE [Suspect]
     Indication: DEPRESSION
  6. AMPICILLIN [Suspect]
     Indication: BACTERAEMIA
  7. CEFTRIAXONE [Suspect]
     Indication: PNEUMONIA
  8. CITALOPRAM [Suspect]
     Indication: DEPRESSION
  9. ENALAPRIL MALEATE [Suspect]
     Indication: HYPERTENSION
  10. FUROSEMIDE [Suspect]
     Indication: HYPERTENSION
  11. GLYBURIDE [Suspect]
     Indication: TYPE 2 DIABETES MELLITUS
     Route: 048
  12. HYDROCORTISONE [Suspect]
  13. IMMUNE GLOBULIN NOS [Suspect]
     Route: 042
  14. LEVOFLOXACIN [Suspect]
     Indication: BACTERAEMIA
  15. METFORMIN HYDROCHLORIDE [Suspect]
     Indication: TYPE 2 DIABETES MELLITUS
     Route: 048
  16. PIPERACILLIN AND TAZOBACTAM [Suspect]
     Indication: BACTERAEMIA
     Route: 042
  17. SIMVASTATIN [Suspect]
     Indication: HYPERLIPIDAEMIA
  18. THEOPHYLLINE [Suspect]
     Indication: BRONCHITIS CHRONIC
  19. VERAPAMIL [Suspect]
     Indication: HYPERTENSION
  20. CIPROFLOXACIN [Suspect]
  21. DEXTROSE [Concomitant]
     Indication: HYPOGLYCAEMIA
     Route: 042
  22. LATANOPROST [Concomitant]
  23. MAGNESIUM SULFATE [Concomitant]
     Indication: HYPOMAGNESAEMIA

REACTIONS (5)
  - ACUTE RESPIRATORY DISTRESS SYNDROME [None]
  - BACTERIAL INFECTION [None]
  - HAEMORRHAGE INTRACRANIAL [None]
  - HYPOGLYCAEMIA [None]
  - TOXIC EPIDERMAL NECROLYSIS [None]
